FAERS Safety Report 6144018-X (Version None)
Quarter: 2009Q2

REPORT INFORMATION
  Report Type: 
  Country: None (occurrence: None)
  Receive Date: 20090406
  Receipt Date: 20090330
  Transmission Date: 20091009
  Serious: Yes (Other)
  Sender: FDA-Public Use
  Company Number: US-BRISTOL-MYERS SQUIBB COMPANY-14567762

PATIENT
  Age: 40 Year
  Sex: Male

DRUGS (10)
  1. TRIAMCINOLONE [Suspect]
     Indication: HYPERSENSITIVITY
     Route: 045
  2. METOPROLOL TARTRATE [Suspect]
     Route: 042
  3. EPHEDRINE [Suspect]
  4. METHYLPREDNISOLONE 4MG TAB [Suspect]
     Indication: HYPOTENSION
     Route: 042
  5. CONTRAST AGENT [Suspect]
  6. ADENOSINE [Suspect]
  7. NORADRENALINE [Suspect]
  8. AMIODARONE HCL [Suspect]
  9. CALCIUM GLUCONATE [Suspect]
  10. MAGNESIUM SULFATE [Suspect]

REACTIONS (1)
  - PHAEOCHROMOCYTOMA [None]
